FAERS Safety Report 9246169 (Version 2)
Quarter: 2013Q2

REPORT INFORMATION
  Report Type: Report from Study
  Country: BR (occurrence: BR)
  Receive Date: 20130422
  Receipt Date: 20130424
  Transmission Date: 20140414
  Serious: Yes (Life-Threatening, Other)
  Sender: FDA-Public Use
  Company Number: BR-ROCHE-1215726

PATIENT
  Sex: Male
  Weight: 94 kg

DRUGS (4)
  1. INTERFERON ALFA-2A [Suspect]
     Indication: HEPATITIS C
     Route: 065
     Dates: start: 2004, end: 2005
  2. INTERFERON ALFA-2A [Suspect]
     Route: 065
     Dates: start: 2007, end: 2008
  3. EFAVIRENZ [Concomitant]
     Indication: HIV INFECTION
     Route: 065
  4. LAMIVUDINE [Concomitant]
     Indication: HIV INFECTION
     Route: 065

REACTIONS (5)
  - Drug ineffective [Unknown]
  - Immunodeficiency [Unknown]
  - Mood altered [Unknown]
  - Pyrexia [Unknown]
  - Depressed mood [Unknown]
